FAERS Safety Report 9891896 (Version 2)
Quarter: 2014Q2

REPORT INFORMATION
  Report Type: Report from Study
  Country: CA (occurrence: CA)
  Receive Date: 20140212
  Receipt Date: 20140623
  Transmission Date: 20141212
  Serious: Yes (Other)
  Sender: FDA-Public Use
  Company Number: CA-JNJFOC-20140203627

PATIENT
  Age: 26 Year
  Sex: Female
  Weight: 83 kg

DRUGS (2)
  1. REMICADE [Suspect]
     Indication: CROHN^S DISEASE
     Route: 042
     Dates: start: 20131104, end: 20140202
  2. IMURAN [Concomitant]
     Route: 065

REACTIONS (2)
  - Lupus-like syndrome [Not Recovered/Not Resolved]
  - Drug ineffective [Unknown]
